FAERS Safety Report 5104733-3 (Version None)
Quarter: 2006Q3

REPORT INFORMATION
  Report Type: 
  Country: None (occurrence: None)
  Receive Date: 20060731
  Receipt Date: 20050804
  Transmission Date: 20061208
  Serious: Yes (Hospitalization)
  Sender: FDA-Public Use
  Company Number: US-JNJFOC-20050203661

PATIENT
  Age: 33 Year
  Sex: Male

DRUGS (2)
  1. RISPERDAL [Suspect]
     Indication: SCHIZOPHRENIA
     Dosage: 3 MG, 2 IN 1 DAYS, ORAL
     Route: 048
     Dates: start: 20040301, end: 20050129
  2. SEROQUEL [Suspect]
     Indication: SCHIZOPHRENIA
     Dosage: , 2 IN 1 DAY, ORAL
     Route: 048
     Dates: end: 20040801

REACTIONS (4)
  - HALLUCINATION [None]
  - PYREXIA [None]
  - SCHIZOPHRENIA [None]
  - TIC [None]
